FAERS Safety Report 7903927-9 (Version None)
Quarter: 2011Q4

REPORT INFORMATION
  Report Type: 
  Country: None (occurrence: None)
  Receive Date: 20111109
  Receipt Date: 20110728
  Transmission Date: 20120403
  Serious: No
  Sender: FDA-Public Use
  Company Number: US-BAYER-2011-068330

PATIENT
  Age: 25 Year
  Sex: Female
  Weight: 61 kg

DRUGS (2)
  1. ALEVE (CAPLET) [Suspect]
     Dosage: 1 DF, Q4HR
     Route: 048
     Dates: start: 20110728
  2. METHADOSE [Concomitant]
     Dosage: UNK

REACTIONS (1)
  - NO ADVERSE EVENT [None]
